FAERS Safety Report 4633368-1 (Version None)
Quarter: 2005Q2

REPORT INFORMATION
  Report Type: 
  Country: None (occurrence: None)
  Receive Date: 20050412
  Receipt Date: 20050324
  Transmission Date: 20051028
  Serious: Yes (Hospitalization)
  Sender: FDA-Public Use
  Company Number: 10761

PATIENT
  Age: 50 Year
  Sex: Female

DRUGS (2)
  1. LEUCOVORIN CALCIUM [Suspect]
     Indication: COLON CANCER
     Dosage: 75 MG PO
     Route: 048
     Dates: start: 20050216, end: 20050226
  2. TEGAFUR URACIL [Suspect]
     Indication: COLON CANCER
     Dosage: 600 MG
     Dates: start: 20050216, end: 20050226

REACTIONS (8)
  - BLOOD ALBUMIN DECREASED [None]
  - DERMATITIS EXFOLIATIVE [None]
  - DIARRHOEA [None]
  - PALMAR-PLANTAR ERYTHRODYSAESTHESIA SYNDROME [None]
  - PHARYNGEAL CANDIDIASIS [None]
  - SKIN EXFOLIATION [None]
  - STOMATITIS [None]
  - VOMITING [None]
